FAERS Safety Report 8569501-9 (Version None)
Quarter: 2012Q3

REPORT INFORMATION
  Report Type: 
  Country: None (occurrence: None)
  Receive Date: 20120803
  Receipt Date: 20120302
  Transmission Date: 20120928
  Serious: No
  Sender: FDA-Public Use
  Company Number: US-ABBOTT-12P-163-0910931-00

PATIENT
  Sex: Female

DRUGS (2)
  1. NIASPAN [Suspect]
     Indication: PRODUCT USED FOR UNKNOWN INDICATION
     Dosage: AT BEDTIME
  2. NIASPAN [Suspect]
     Dosage: AT BEDTIME

REACTIONS (11)
  - FLUSHING [None]
  - ERYTHEMA [None]
  - CHILLS [None]
  - GAIT DISTURBANCE [None]
  - PAIN IN EXTREMITY [None]
  - BURNING SENSATION [None]
  - DIZZINESS [None]
  - DISORIENTATION [None]
  - URTICARIA [None]
  - VOMITING PROJECTILE [None]
  - SYNCOPE [None]
